FAERS Safety Report 5839074-X (Version None)
Quarter: 2008Q3

REPORT INFORMATION
  Report Type: 
  Country: None (occurrence: None)
  Receive Date: 20080808
  Receipt Date: 20080731
  Transmission Date: 20090109
  Serious: Yes (Hospitalization)
  Sender: FDA-Public Use
  Company Number: US-PFIZER INC-2005108140

PATIENT
  Sex: Male
  Weight: 167 kg

DRUGS (8)
  1. SU-011,248 [Suspect]
     Indication: METASTATIC RENAL CELL CARCINOMA
     Route: 048
     Dates: start: 20050531, end: 20050727
  2. IRON [Concomitant]
     Dosage: FREQ:UNKNOWN
     Route: 048
  3. MULTI-VITAMINS [Concomitant]
     Dosage: FREQ:UNKNOWN
     Route: 048
  4. ZOLOFT [Concomitant]
     Dosage: FREQ:UNKNOWN
     Route: 048
  5. PEPCID [Concomitant]
     Dosage: FREQ:UNKNOWN
     Route: 048
  6. VICODIN ES [Concomitant]
     Dosage: FREQ:UNKNOWN
     Route: 048
  7. PROCRIT [Concomitant]
     Dosage: FREQ:UNKNOWN
     Route: 048
  8. ZOMETA [Concomitant]
     Dosage: FREQ:UNKNOWN
     Route: 042

REACTIONS (2)
  - BLOOD BILIRUBIN INCREASED [None]
  - IDIOPATHIC THROMBOCYTOPENIC PURPURA [None]
